FAERS Safety Report 5358271-3 (Version None)
Quarter: 2007Q2

REPORT INFORMATION
  Report Type: 
  Country: None (occurrence: None)
  Receive Date: 20070530
  Receipt Date: 20061121
  Transmission Date: 20071010
  Serious: Yes (Hospitalization)
  Sender: FDA-Public Use
  Company Number: US200603002141

PATIENT
  Age: 39 Year
  Sex: Female
  Weight: 84.8 kg

DRUGS (2)
  1. ZYPREXA [Suspect]
     Indication: DEPRESSION
     Dosage: 15 MG
     Dates: start: 20030301
  2. RISPERIDONE [Concomitant]

REACTIONS (1)
  - DIABETES MELLITUS [None]
